FAERS Safety Report 9912901 (Version 1)
Quarter: 2014Q1

REPORT INFORMATION
  Report Type: Spontaneous
  Country: US (occurrence: None)
  Receive Date: 20140218
  Receipt Date: 20140218
  Transmission Date: 20141002
  Serious: Yes (Other)
  Sender: FDA-Public Use
  Company Number: None

PATIENT
  Age: 25 Year
  Sex: Female
  Weight: 127.01 kg

DRUGS (1)
  1. ICY HOT [Suspect]
     Indication: ARTHRALGIA
     Dates: start: 20140211, end: 20140212

REACTIONS (4)
  - Application site swelling [None]
  - Application site erythema [None]
  - Application site pain [None]
  - Application site burn [None]
